FAERS Safety Report 17895288 (Version 3)
Quarter: 2022Q3

REPORT INFORMATION
  Report Type: Other
  Country: US (occurrence: None)
  Receive Date: 20200615
  Receipt Date: 20220901
  Transmission Date: 20221027
  Serious: Yes (Other)
  Sender: FDA-Public Use
  Company Number: US-ROCHE-2115128

PATIENT
  Age: 61 Year
  Sex: Female
  Weight: 44.492 kg

DRUGS (6)
  1. OCREVUS [Suspect]
     Active Substance: OCRELIZUMAB
     Indication: Relapsing-remitting multiple sclerosis
     Dosage: LAST DATE OF TREATMENT ON 06/JAN/2020
     Route: 042
     Dates: start: 20180417
  2. OCREVUS [Suspect]
     Active Substance: OCRELIZUMAB
     Route: 042
     Dates: start: 201711
  3. PROLIA [Concomitant]
     Active Substance: DENOSUMAB
     Indication: Osteoporosis
     Dosage: GIVEN AFTER EACH OCREVUS INFUSION
  4. BACLOFEN [Concomitant]
     Active Substance: BACLOFEN
     Indication: Muscle tightness
  5. LYRICA [Concomitant]
     Active Substance: PREGABALIN
     Indication: Pain
  6. ANASTROZOLE [Concomitant]
     Active Substance: ANASTROZOLE
     Dosage: INDICATION: PAST MEDICAL HISTORY OF BREAST CANCER

REACTIONS (9)
  - Fatigue [Not Recovered/Not Resolved]
  - Muscular weakness [Not Recovered/Not Resolved]
  - Gait disturbance [Unknown]
  - JC polyomavirus test positive [Unknown]
  - Multiple sclerosis [Not Recovered/Not Resolved]
  - Off label use [Unknown]
  - Breast cancer [Unknown]
  - Osteoporosis [Unknown]
  - Pain [Unknown]

NARRATIVE: CASE EVENT DATE: 20180401
